FAERS Safety Report 8571722-6 (Version None)
Quarter: 2012Q3

REPORT INFORMATION
  Report Type: 
  Country: None (occurrence: None)
  Receive Date: 20120806
  Receipt Date: 20120802
  Transmission Date: 20120928
  Serious: Yes (Other)
  Sender: FDA-Public Use
  Company Number: PHEH2012US012110

PATIENT
  Sex: Male

DRUGS (1)
  1. EXELON [Suspect]
     Dosage: UNK
     Route: 062

REACTIONS (2)
  - DISEASE PROGRESSION [None]
  - DRUG INEFFECTIVE [None]
